FAERS Safety Report 23434153 (Version 1)
Quarter: 2024Q1

REPORT INFORMATION
  Report Type: Spontaneous
  Country: US (occurrence: US)
  Receive Date: 20240123
  Receipt Date: 20240123
  Transmission Date: 20240409
  Serious: No
  Sender: FDA-Public Use
  Company Number: US-ELI_LILLY_AND_COMPANY-US202401012997

PATIENT

DRUGS (3)
  1. HUMALOG [Suspect]
     Active Substance: INSULIN LISPRO
     Indication: Diabetes mellitus
     Dosage: 12 U, TID
     Route: 058
  2. HUMALOG [Suspect]
     Active Substance: INSULIN LISPRO
     Dosage: UNK UNK, UNKNOWN
     Route: 065
  3. TOUJEO [Concomitant]
     Active Substance: INSULIN GLARGINE
     Indication: Product used for unknown indication

REACTIONS (2)
  - Blood glucose increased [Unknown]
  - Incorrect dose administered [Unknown]
